FAERS Safety Report 5800479-4 (Version None)
Quarter: 2008Q3

REPORT INFORMATION
  Report Type: 
  Country: None (occurrence: None)
  Receive Date: 20080703
  Receipt Date: 20080630
  Transmission Date: 20090109
  Serious: Yes (Hospitalization)
  Sender: FDA-Public Use
  Company Number: A0735366A

PATIENT
  Age: 50 Year
  Sex: Female

DRUGS (10)
  1. IMITREX [Suspect]
     Indication: MIGRAINE
     Dosage: 100MG AS REQUIRED
     Route: 048
     Dates: start: 20050101
  2. LASIX [Concomitant]
  3. AMBIEN CR [Concomitant]
  4. PREMPRO [Concomitant]
  5. VESICARE [Concomitant]
  6. ZYRTEC [Concomitant]
  7. NASONEX [Concomitant]
  8. GABAPENTIN [Concomitant]
  9. SERTRALINE [Concomitant]
  10. LORAZEPAM [Concomitant]

REACTIONS (3)
  - CHOLELITHIASIS [None]
  - HORDEOLUM [None]
  - OEDEMA [None]
